FAERS Safety Report 5241958-0 (Version None)
Quarter: 2007Q1

REPORT INFORMATION
  Report Type: 
  Country: None (occurrence: None)
  Receive Date: 20070220
  Receipt Date: 20070212
  Transmission Date: 20070707
  Serious: Yes (Hospitalization)
  Sender: FDA-Public Use
  Company Number: CA-BOEHRINGER INGELHEIM GMBH, GERMANY-2007-CN-00078CN

PATIENT
  Sex: Female

DRUGS (2)
  1. MICARDIS HCT [Suspect]
     Indication: BLOOD PRESSURE INCREASED
     Dates: start: 20060126, end: 20061225
  2. LIPIDIL [Concomitant]

REACTIONS (1)
  - CORONARY ARTERY OCCLUSION [None]
